FAERS Safety Report 11337989 (Version 1)
Quarter: 2015Q3

REPORT INFORMATION
  Report Type: Spontaneous
  Country: US (occurrence: US)
  Receive Date: 20150803
  Receipt Date: 20150803
  Transmission Date: 20151125
  Serious: Yes (Other)
  Sender: FDA-Public Use
  Company Number: US-ELI_LILLY_AND_COMPANY-US201004005665

PATIENT
  Age: 70 Year
  Sex: Female
  Weight: 71.2 kg

DRUGS (2)
  1. ZYPREXA [Suspect]
     Active Substance: OLANZAPINE
     Indication: BIPOLAR DISORDER
     Dosage: 2.5 MG, UNK
     Dates: start: 2004
  2. ZYPREXA [Suspect]
     Active Substance: OLANZAPINE
     Dosage: 10 MG, UNK
     Dates: end: 201004

REACTIONS (1)
  - Weight increased [Unknown]

NARRATIVE: CASE EVENT DATE: 2004
